FAERS Safety Report 7042913-0 (Version None)
Quarter: 2010Q4

REPORT INFORMATION
  Report Type: 
  Country: None (occurrence: None)
  Receive Date: 20101013
  Receipt Date: 20100412
  Transmission Date: 20110411
  Serious: No
  Sender: FDA-Public Use
  Company Number: US-ASTRAZENECA-2010SE16027

PATIENT
  Age: 75 Year
  Sex: Male
  Weight: 108.9 kg

DRUGS (9)
  1. SYMBICORT [Suspect]
     Indication: CHRONIC OBSTRUCTIVE PULMONARY DISEASE
     Dosage: 320 MCG TWO TIMES A DAY
     Route: 055
  2. NORVASC [Concomitant]
  3. LASIX [Concomitant]
  4. METOPROLOL [Concomitant]
  5. POTASSIUM [Concomitant]
  6. COUMADIN [Concomitant]
  7. ASPIRIN [Concomitant]
  8. TYLENOL [Concomitant]
  9. PRILOSEC [Concomitant]

REACTIONS (1)
  - STOMATITIS [None]
